FAERS Safety Report 4387054-6 (Version None)
Quarter: 2004Q2

REPORT INFORMATION
  Report Type: 
  Country: None (occurrence: None)
  Receive Date: 20040630
  Receipt Date: 20040302
  Transmission Date: 20050107
  Serious: No
  Sender: FDA-Public Use
  Company Number: US-GLAXOSMITHKLINE-A0500723A

PATIENT
  Age: 62 Year
  Sex: Female

DRUGS (8)
  1. ADVAIR HFA [Suspect]
     Indication: ASTHMA
     Route: 055
     Dates: start: 20040201
  2. LORAZEPAM [Concomitant]
  3. FOSAMAX [Concomitant]
  4. ALLEGRA-D [Concomitant]
  5. CALCIUM [Concomitant]
  6. PROVENTIL [Concomitant]
  7. ACIPHEX [Concomitant]
  8. LIPITOR [Concomitant]

REACTIONS (3)
  - HOARSENESS [None]
  - ORAL CANDIDIASIS [None]
  - THROAT IRRITATION [None]
